FAERS Safety Report 24951373 (Version 2)
Quarter: 2025Q2

REPORT INFORMATION
  Report Type: Report from Study
  Country: TR (occurrence: TR)
  Receive Date: 20250210
  Receipt Date: 20250402
  Transmission Date: 20250716
  Serious: Yes (Death, Other)
  Sender: PFIZER
  Company Number: TR-PFIZER INC-PV202300067811

PATIENT
  Age: 72 Year
  Sex: Female

DRUGS (2)
  1. ELRANATAMAB [Suspect]
     Active Substance: ELRANATAMAB
     Indication: Plasma cell myeloma recurrent
  2. ELRANATAMAB [Suspect]
     Active Substance: ELRANATAMAB

REACTIONS (4)
  - Death [Fatal]
  - Cytomegalovirus infection [Unknown]
  - Neutropenia [Recovered/Resolved]
  - Hypersensitivity [Unknown]
